FAERS Safety Report 7451565-7 (Version None)
Quarter: 2011Q2

REPORT INFORMATION
  Report Type: 
  Country: None (occurrence: None)
  Receive Date: 20110502
  Receipt Date: 20100617
  Transmission Date: 20111010
  Serious: No
  Sender: FDA-Public Use
  Company Number: US-ASTRAZENECA-2010SE12927

PATIENT
  Sex: Female
  Weight: 90.7 kg

DRUGS (13)
  1. AMBIEN CR [Concomitant]
     Indication: SLEEP DISORDER
  2. NEXIUM [Suspect]
     Indication: REFLUX OESOPHAGITIS
     Route: 048
     Dates: start: 20090101
  3. SINGULAIR [Concomitant]
     Indication: ASTHMA
  4. THYROID TAB [Concomitant]
     Indication: THYROID DISORDER
  5. PROGESTERONE [Concomitant]
     Indication: PROGESTERONE
  6. PROVENTIL [Concomitant]
     Indication: ASTHMA
  7. VIEST [Concomitant]
     Indication: BLOOD OESTROGEN
  8. TESTOSTERONE [Concomitant]
     Indication: HORMONE REPLACEMENT THERAPY
  9. MULTI-VITAMIN [Suspect]
  10. ZYRTEC [Concomitant]
     Indication: ASTHMA
  11. FLOVENT [Concomitant]
     Indication: ASTHMA
  12. PRILOSEC [Suspect]
     Indication: GASTROOESOPHAGEAL REFLUX DISEASE
     Route: 048
  13. SIMVASTATIN [Concomitant]
     Indication: BLOOD CHOLESTEROL

REACTIONS (5)
  - OESOPHAGEAL PAIN [None]
  - NAUSEA [None]
  - WHEEZING [None]
  - DRUG INEFFECTIVE [None]
  - DYSPEPSIA [None]
